FAERS Safety Report 16396380 (Version 3)
Quarter: 2019Q2

REPORT INFORMATION
  Report Type: Spontaneous
  Country: GB (occurrence: GB)
  Receive Date: 20190605
  Receipt Date: 20190612
  Transmission Date: 20190711
  Serious: Yes (Death, Other)
  Sender: FDA-Public Use
  Company Number: GB-009507513-1906GBR001260

PATIENT
  Age: 13 Year
  Sex: Male

DRUGS (1)
  1. MONTELUKAST SODIUM. [Suspect]
     Active Substance: MONTELUKAST SODIUM
     Indication: ASTHMA
     Dosage: FIRST DOSE
     Route: 048
     Dates: start: 2009

REACTIONS (5)
  - Anxiety [Unknown]
  - Gastrointestinal disorder [Unknown]
  - Completed suicide [Fatal]
  - Nightmare [Unknown]
  - Depression [Unknown]

NARRATIVE: CASE EVENT DATE: 2009
